FAERS Safety Report 9944893 (Version 1)
Quarter: 2014Q1

REPORT INFORMATION
  Report Type: Report from Study
  Country: US (occurrence: US)
  Receive Date: 20140303
  Receipt Date: 20140303
  Transmission Date: 20141002
  Serious: No
  Sender: FDA-Public Use
  Company Number: US-ABBVIE-13P-163-1054508-00

PATIENT
  Sex: Male
  Weight: 89.89 kg

DRUGS (7)
  1. HUMIRA [Suspect]
     Indication: SARCOIDOSIS
     Dates: start: 2006
  2. LISINOPRIL [Concomitant]
     Indication: BLOOD PRESSURE
  3. OMEPRAZOLE [Concomitant]
     Indication: GASTROOESOPHAGEAL REFLUX DISEASE
  4. ADVAIR [Concomitant]
     Indication: SARCOIDOSIS
  5. SERTRALINE [Concomitant]
     Indication: DEPRESSION
  6. HYDROCODONE [Concomitant]
     Indication: PAIN
  7. DILTIAZEM [Concomitant]
     Indication: BLOOD PRESSURE

REACTIONS (2)
  - Off label use [Not Recovered/Not Resolved]
  - Diabetes mellitus [Not Recovered/Not Resolved]
